FAERS Safety Report 24913424 (Version 1)
Quarter: 2025Q1

REPORT INFORMATION
  Report Type: Spontaneous
  Country: CN (occurrence: CN)
  Receive Date: 20250201
  Receipt Date: 20250201
  Transmission Date: 20250408
  Serious: Yes (Death, Life-Threatening, Hospitalization)
  Sender: ACCORD
  Company Number: CN-MLMSERVICE-20250116-PI361312-00232-1

PATIENT
  Age: 16 Month
  Sex: Male

DRUGS (2)
  1. MYCOPHENOLATE MOFETIL [Suspect]
     Active Substance: MYCOPHENOLATE MOFETIL
     Indication: Immunosuppressant drug therapy
     Dosage: MYCOPHENOLATE MOFETIL DISPERSIBLE TABLETS: 125 MG, 2/24 H
  2. TACROLIMUS [Suspect]
     Active Substance: TACROLIMUS
     Indication: Immunosuppressant drug therapy
     Dosage: TACROLIMUS CAPSULES: 6 MG, 3/24 H

REACTIONS (7)
  - Diffuse large B-cell lymphoma [Fatal]
  - Epstein-Barr virus associated lymphoproliferative disorder [Fatal]
  - Pneumonia viral [Fatal]
  - Septic shock [Fatal]
  - Respiratory failure [Fatal]
  - Intestinal perforation [Fatal]
  - Ascites [Fatal]
